FAERS Safety Report 7329148-9 (Version None)
Quarter: 2011Q1

REPORT INFORMATION
  Report Type: 
  Country: None (occurrence: None)
  Receive Date: 20110228
  Receipt Date: 20110228
  Transmission Date: 20110831
  Serious: Yes (Other)
  Sender: FDA-Public Use
  Company Number: None

PATIENT
  Age: 43 Year
  Sex: Female
  Weight: 58.0604 kg

DRUGS (1)
  1. METHYLPREDNISOLONE [Suspect]
     Indication: DERMATITIS CONTACT
     Dates: start: 20110217, end: 20110224

REACTIONS (3)
  - MUSCULAR WEAKNESS [None]
  - PYREXIA [None]
  - MUSCULOSKELETAL STIFFNESS [None]
